FAERS Safety Report 7249468-6 (Version None)
Quarter: 2011Q1

REPORT INFORMATION
  Report Type: 
  Country: None (occurrence: None)
  Receive Date: 20110128
  Receipt Date: 20101207
  Transmission Date: 20110831
  Serious: Yes (Hospitalization, Other)
  Sender: FDA-Public Use
  Company Number: US-BAYER-201029597NA

PATIENT
  Sex: Female
  Weight: 170.7 kg

DRUGS (17)
  1. ASCORBIC ACID [Concomitant]
  2. HYDROCHLOROTHIAZIDE [Concomitant]
  3. ACE INHIBITOR NOS [Concomitant]
     Indication: HYPERTENSION
     Dosage: UNK
     Dates: start: 20040101
  4. YASMIN [Suspect]
     Indication: MENSTRUAL CYCLE MANAGEMENT
  5. UNCODEABLE ^UNCLASSIFIABLE^ [Concomitant]
     Indication: PAIN
     Dosage: UNK
     Dates: start: 20020101
  6. ALBUTEROL [Concomitant]
     Dosage: UNK
     Dates: start: 20020101
  7. MULTI-VITAMIN [Concomitant]
  8. LASIX [Concomitant]
     Indication: SWELLING
  9. POTASSIUM [Concomitant]
     Dosage: 198 MG, QD
  10. NEXIUM [Concomitant]
     Dosage: UNK
     Dates: start: 20020101
  11. HYDROCHLOROTHIAZIDE [Concomitant]
     Dosage: UNK
  12. YASMIN [Suspect]
     Indication: CONTRACEPTION
     Dosage: UNK UNK, UNK
     Route: 048
     Dates: start: 20030110, end: 20040101
  13. FUROSEMIDE [Concomitant]
  14. MULTI-VITAMIN [Concomitant]
     Dosage: UNK
     Dates: start: 20020101
  15. POTASSIUM [Concomitant]
     Dosage: UNK
     Dates: end: 20030101
  16. METHOCARBAMOL [Concomitant]
     Dosage: UNK
     Dates: start: 20020101
  17. YASMIN [Suspect]
     Indication: PREMENSTRUAL SYNDROME

REACTIONS (9)
  - ABDOMINAL PAIN [None]
  - CHOLELITHIASIS [None]
  - PAIN [None]
  - GALLBLADDER PAIN [None]
  - ABDOMINAL PAIN UPPER [None]
  - HEPATIC STEATOSIS [None]
  - NAUSEA [None]
  - FLANK PAIN [None]
  - FEELING HOT [None]
